FAERS Safety Report 5572784-0 (Version None)
Quarter: 2007Q4

REPORT INFORMATION
  Report Type: 
  Country: None (occurrence: None)
  Receive Date: 20071223
  Receipt Date: 20071213
  Transmission Date: 20080405
  Serious: Yes (Other)
  Sender: FDA-Public Use
  Company Number: PHBS2007NL20909

PATIENT
  Age: 79 Year
  Sex: Female

DRUGS (15)
  1. EXELON [Suspect]
     Indication: HALLUCINATION, VISUAL
     Dosage: 1.5 MG, QD
     Route: 048
     Dates: start: 20071029, end: 20071104
  2. EXELON [Suspect]
     Dosage: 3 MG, QD
     Route: 048
     Dates: start: 20071104, end: 20071116
  3. ACETYLSALICYLIC ACID SRT [Suspect]
     Dosage: 80 MG, QD
     Route: 065
     Dates: start: 20060512
  4. ACTRAPID HUMAN [Concomitant]
     Dosage: 100 IE/ML 3 ML
     Route: 065
     Dates: start: 20070830
  5. COLEX [Concomitant]
     Indication: CONSTIPATION
     Dosage: WHEN NECESSARY
     Route: 065
     Dates: start: 20051031
  6. LIDOCAINE [Concomitant]
     Dosage: 50 MG/G WHEN NECESSARY 1 DF BID
     Route: 061
     Dates: start: 20070705
  7. VASELINE [Concomitant]
     Dosage: 1 DF, BID
     Route: 061
     Dates: start: 20041202
  8. METFORMIN [Concomitant]
     Dosage: 850 MG, BID
     Route: 048
     Dates: start: 20020715
  9. MIRTAZAPINE [Concomitant]
     Dosage: 15 MG, QD
     Route: 048
     Dates: start: 20070828
  10. MIXTARD HUMAN 70/30 [Concomitant]
     Dosage: 30 100 IE/ML 3 ML
     Route: 065
     Dates: start: 20061113
  11. OXAZEPAM [Concomitant]
     Dosage: 10 MG, TID, WHEN NECESSARY
     Route: 048
     Dates: start: 20070917
  12. NORGALAX [Concomitant]
     Indication: CONSTIPATION
     Dosage: 10 G, PRN
     Route: 065
     Dates: start: 20060522
  13. NEXIUM [Concomitant]
     Dosage: 40 MG, QD
     Route: 048
     Dates: start: 20070215, end: 20071115
  14. NEXIUM [Concomitant]
     Dosage: 40 MG, BID
     Route: 048
     Dates: start: 20071116
  15. MOVICOLON [Concomitant]
     Dosage: 1 DF, Q48H
     Route: 048
     Dates: start: 20070320

REACTIONS (2)
  - DRUG INTERACTION [None]
  - MOUTH HAEMORRHAGE [None]
